FAERS Safety Report 8954899 (Version 1)
Quarter: 2012Q4

REPORT INFORMATION
  Report Type: Spontaneous
  Country: GB (occurrence: None)
  Receive Date: 20121129
  Receipt Date: 20121129
  Transmission Date: 20130627
  Serious: Yes (Death, Other)
  Sender: FDA-Public Use
  Company Number: AUR-APL-2012-04997

PATIENT
  Age: 91 Year
  Sex: Male

DRUGS (7)
  1. SIMVASTATIN (SIMVASTATIN) [Suspect]
     Indication: DRUG USE FOR UNKNOWN INDICATION
     Route: 048
     Dates: end: 20121024
  2. AMIODARONE [Suspect]
     Indication: VENTRICULAR TACHYCARDIA
     Route: 048
     Dates: start: 201012, end: 20121024
  3. ASPIRIN (ACETYLSALICYLIC ACID) [Concomitant]
  4. BISOPROLOL (BISOPROLOL) [Concomitant]
  5. DOXAZOSIN (DOXAZOSIN) [Concomitant]
  6. FUROSEMIDE (FUROSEMIDE) [Concomitant]
  7. PERINDOPRIL (PERINDOPRIL) [Concomitant]

REACTIONS (2)
  - Pulmonary fibrosis [None]
  - Interstitial lung disease [None]
